FAERS Safety Report 5106454-X (Version None)
Quarter: 2006Q3

REPORT INFORMATION
  Report Type: 
  Country: None (occurrence: None)
  Receive Date: 20060912
  Receipt Date: 20060905
  Transmission Date: 20061208
  Serious: Yes (Other)
  Sender: FDA-Public Use
  Company Number: 2006107141

PATIENT
  Age: 45 Year
  Sex: Female
  Weight: 79.3795 kg

DRUGS (1)
  1. SUDAFED PE (PHENYLEPHRINE) [Suspect]
     Indication: NASAL CONGESTION
     Dosage: ONE TABLET ONCE, ORAL
     Route: 048
     Dates: start: 20060905, end: 20060905

REACTIONS (1)
  - DRUG HYPERSENSITIVITY [None]
